FAERS Safety Report 21498379 (Version 2)
Quarter: 2022Q4

REPORT INFORMATION
  Report Type: Spontaneous
  Country: JP (occurrence: JP)
  Receive Date: 20221024
  Receipt Date: 20221122
  Transmission Date: 20230113
  Serious: No
  Sender: FDA-Public Use
  Company Number: JP-ELI_LILLY_AND_COMPANY-JP202210007893

PATIENT
  Age: 62 Year
  Sex: Male

DRUGS (9)
  1. DULOXETINE HYDROCHLORIDE [Suspect]
     Active Substance: DULOXETINE HYDROCHLORIDE
     Indication: Phantom limb syndrome
     Dosage: 20 MG, DAILY
     Route: 048
     Dates: start: 20220901
  2. DULOXETINE HYDROCHLORIDE [Suspect]
     Active Substance: DULOXETINE HYDROCHLORIDE
     Dosage: 40 MG, DAILY
     Route: 048
     Dates: start: 20220916, end: 20220920
  3. JARDIANCE [Suspect]
     Active Substance: EMPAGLIFLOZIN
     Indication: Product used for unknown indication
     Dosage: 10 MG
     Route: 048
     Dates: start: 20220825, end: 20220914
  4. LINAGLIPTIN [Concomitant]
     Active Substance: LINAGLIPTIN
     Dosage: 5 MG
  5. PREGABALIN [Concomitant]
     Active Substance: PREGABALIN
     Dosage: 150 MG
     Dates: start: 20220124
  6. DAIMEDIN 3B [Concomitant]
     Dosage: 2 DOSAGE FORM
  7. CILOSTAZOL [Concomitant]
     Active Substance: CILOSTAZOL
     Dosage: 200 MG
  8. TIAPRIDE [Concomitant]
     Active Substance: TIAPRIDE
     Dosage: 100 MG
     Dates: start: 20211125
  9. DAYVIGO [Concomitant]
     Active Substance: LEMBOREXANT
     Dosage: 1800 MG
     Dates: start: 20211125

REACTIONS (2)
  - Liver disorder [Recovering/Resolving]
  - Off label use [Unknown]

NARRATIVE: CASE EVENT DATE: 20220825
